FAERS Safety Report 4620074-2 (Version None)
Quarter: 2005Q1

REPORT INFORMATION
  Report Type: 
  Country: None (occurrence: None)
  Receive Date: 20050321
  Receipt Date: 20050321
  Transmission Date: 20050727
  Serious: No
  Sender: FDA-Public Use
  Company Number: None

PATIENT

DRUGS (4)
  1. SINGULAIR [Suspect]
     Dosage: TABLET
  2. COZAAR [Suspect]
     Dosage: TABLET
  3. HYZAAR [Suspect]
     Dosage: TABLET
  4. ZOCOR [Suspect]
     Dosage: TABLET

REACTIONS (3)
  - DIZZINESS [None]
  - FATIGUE [None]
  - MEDICATION ERROR [None]
